FAERS Safety Report 21878332 (Version 1)
Quarter: 2023Q1

REPORT INFORMATION
  Report Type: Spontaneous
  Country: US (occurrence: None)
  Receive Date: 20230117
  Receipt Date: 20230117
  Transmission Date: 20230417
  Serious: Yes (Hospitalization)
  Sender: FDA-Public Use
  Company Number: None

PATIENT
  Age: 70 Year
  Sex: Male
  Weight: 126.7 kg

DRUGS (1)
  1. AXICABTAGENE CILOLEUCEL [Suspect]
     Active Substance: AXICABTAGENE CILOLEUCEL
     Indication: Diffuse large B-cell lymphoma
     Dosage: OTHER FREQUENCY : ONCE;?
     Route: 042
     Dates: start: 20221201, end: 20221201

REACTIONS (7)
  - Bone pain [None]
  - Incontinence [None]
  - Muscular weakness [None]
  - Back pain [None]
  - Delirium [None]
  - Immune effector cell-associated neurotoxicity syndrome [None]
  - Cytokine release syndrome [None]

NARRATIVE: CASE EVENT DATE: 20221202
